FAERS Safety Report 5287935-5 (Version None)
Quarter: 2007Q2

REPORT INFORMATION
  Report Type: 
  Country: None (occurrence: None)
  Receive Date: 20070405
  Receipt Date: 20070404
  Transmission Date: 20071010
  Serious: Yes (Hospitalization)
  Sender: FDA-Public Use
  Company Number: HQWYE958128MAR07

PATIENT
  Sex: Female

DRUGS (7)
  1. ENBREL [Suspect]
     Indication: RHEUMATOID ARTHRITIS
     Route: 058
     Dates: start: 20060313, end: 20070301
  2. PREDNISOLONE [Concomitant]
     Indication: RHEUMATOID ARTHRITIS
     Dosage: 7.5 MG, FREQUENCY NOT SPECIFIED
     Route: 048
  3. LEVOTHYROXINE SODIUM [Concomitant]
     Dosage: DOSE UNSPECIFIED, TWICE WEEKLY
     Route: 048
  4. HYDROCHLOROTHIAZIDE [Concomitant]
     Indication: HYPERTENSION
     Dosage: UNSPECIFIED
     Route: 048
  5. VERAPAMIL [Concomitant]
     Indication: HYPERTENSION
     Dosage: 120 MG, UNSPECIFIED
     Route: 048
  6. COLCHICINE [Concomitant]
     Indication: AMYLOIDOSIS
     Dosage: 1 MG, FREQUENCY NOT SPECIFIED
     Route: 048
  7. VALSARTAN [Concomitant]
     Indication: HYPERTENSION
     Dosage: 80 MG, FREQUENCY NOT SPECIFIED
     Route: 048

REACTIONS (4)
  - ABDOMINAL PAIN [None]
  - DIARRHOEA [None]
  - ESCHERICHIA URINARY TRACT INFECTION [None]
  - PLEURAL EFFUSION [None]
